FAERS Safety Report 11272309 (Version 1)
Quarter: 2015Q2

REPORT INFORMATION
  Report Type: Spontaneous
  Country: US (occurrence: None)
  Receive Date: 20150625
  Receipt Date: 20150625
  Transmission Date: 20150821
  Serious: No
  Sender: FDA-Public Use
  Company Number: A-US2015-111980

PATIENT
  Age: 82 Year
  Sex: Female

DRUGS (2)
  1. OPSUMIT [Suspect]
     Active Substance: MACITENTAN
     Indication: PULMONARY ARTERIAL HYPERTENSION
     Route: 048
  2. RIOCIGUAT [Concomitant]
     Active Substance: RIOCIGUAT

REACTIONS (6)
  - Oedema peripheral [None]
  - Dyspnoea [None]
  - Diarrhoea [None]
  - Nausea [None]
  - Hyperventilation [None]
  - Periorbital oedema [None]
